FAERS Safety Report 4707055-5 (Version None)
Quarter: 2005Q3

REPORT INFORMATION
  Report Type: 
  Country: None (occurrence: None)
  Receive Date: 20050701
  Receipt Date: 20050622
  Transmission Date: 20060218
  Serious: Yes (Other)
  Sender: FDA-Public Use
  Company Number: MC200500560

PATIENT
  Age: 57 Year
  Sex: Female
  Weight: 79.8 kg

DRUGS (4)
  1. ANGIOMAX [Suspect]
     Dosage: SEE IMAGE
     Route: 042
     Dates: start: 20050622, end: 20050622
  2. ANGIOMAX [Suspect]
     Dosage: SEE IMAGE
     Route: 042
     Dates: start: 20050622, end: 20050622
  3. PLAVIX [Concomitant]
  4. NITRO (GLYCERYL TRINITRATE) [Concomitant]

REACTIONS (4)
  - CORONARY ARTERY DISSECTION [None]
  - HAEMORRHAGE [None]
  - PROCEDURAL COMPLICATION [None]
  - THROMBOSIS IN DEVICE [None]
